FAERS Safety Report 5172365-7 (Version None)
Quarter: 2006Q4

REPORT INFORMATION
  Report Type: 
  Country: None (occurrence: None)
  Receive Date: 20061213
  Receipt Date: 20060728
  Transmission Date: 20070319
  Serious: No
  Sender: FDA-Public Use
  Company Number: US-AMGEN-KDL188061

PATIENT
  Sex: Female

DRUGS (6)
  1. ENBREL [Suspect]
     Indication: PSORIATIC ARTHROPATHY
  2. ZELNORM [Concomitant]
  3. GABAPENTIN [Concomitant]
  4. FEXOFENADINE [Concomitant]
  5. LIPITOR [Concomitant]
  6. DILTIAZEM HCL [Concomitant]

REACTIONS (1)
  - INJECTION SITE REACTION [None]
